FAERS Safety Report 5192898-7 (Version None)
Quarter: 2006Q4

REPORT INFORMATION
  Report Type: 
  Country: None (occurrence: None)
  Receive Date: 20061228
  Receipt Date: 20060208
  Transmission Date: 20070319
  Serious: No
  Sender: FDA-Public Use
  Company Number: US-GLAXOSMITHKLINE-A0592891A

PATIENT
  Age: 82 Year
  Sex: Female

DRUGS (3)
  1. FLONASE [Suspect]
     Indication: POSTNASAL DRIP
     Dosage: 1SPR TWICE PER DAY
     Route: 045
     Dates: start: 20060201, end: 20060101
  2. VITAMINS [Concomitant]
  3. FOSAMAX [Concomitant]

REACTIONS (5)
  - ASTHENIA [None]
  - DRUG INEFFECTIVE [None]
  - HYPERSENSITIVITY [None]
  - NASAL OEDEMA [None]
  - POSTNASAL DRIP [None]
